FAERS Safety Report 6094098-5 (Version None)
Quarter: 2009Q1

REPORT INFORMATION
  Report Type: 
  Country: None (occurrence: None)
  Receive Date: 20090224
  Receipt Date: 20090224
  Transmission Date: 20090719
  Serious: Yes (Hospitalization)
  Sender: FDA-Public Use
  Company Number: None

PATIENT
  Age: 74 Year
  Sex: Male
  Weight: 88.8 kg

DRUGS (15)
  1. ABILIFY [Suspect]
     Indication: AFFECTIVE DISORDER
     Dosage: 20MG PO DAILY
     Route: 048
     Dates: start: 20070901
  2. ABILIFY [Suspect]
     Indication: DEMENTIA
     Dosage: 20MG PO DAILY
     Route: 048
     Dates: start: 20070901
  3. ALBUTEROL/IPRATROPIUM BROMIDE [Concomitant]
  4. ASA/DIPYRIDAMOLE [Concomitant]
  5. FUROSEMIDE [Concomitant]
  6. GABAPENTIN [Concomitant]
  7. INSULIN [Concomitant]
  8. LISINOPRIL [Concomitant]
  9. METFORMIN [Concomitant]
  10. METOPROLOL [Concomitant]
  11. NIACIN [Concomitant]
  12. OMEPRAZOLE [Concomitant]
  13. KCI [Concomitant]
  14. SIMVASTATIN [Concomitant]
  15. VARDENAFIL [Concomitant]

REACTIONS (1)
  - CORONARY ARTERY DISEASE [None]
